FAERS Safety Report 17799856 (Version 1)
Quarter: 2020Q2

REPORT INFORMATION
  Report Type: Report from Study
  Country: IN (occurrence: IN)
  Receive Date: 20200518
  Receipt Date: 20200518
  Transmission Date: 20200714
  Serious: Yes (Death, Other)
  Sender: FDA-Public Use
  Company Number: NVSC2020IN135857

PATIENT
  Age: 64 Year
  Sex: Female

DRUGS (1)
  1. VYMADA [Suspect]
     Active Substance: SACUBITRIL\VALSARTAN
     Indication: CARDIAC FAILURE CONGESTIVE
     Dosage: 50 MG, BID
     Route: 065
     Dates: start: 20190423, end: 20200424

REACTIONS (2)
  - Death [Fatal]
  - Breast cancer [Unknown]

NARRATIVE: CASE EVENT DATE: 20200424
